FAERS Safety Report 8309366-3 (Version None)
Quarter: 2012Q1

REPORT INFORMATION
  Report Type: 
  Country: None (occurrence: None)
  Receive Date: 20120327
  Receipt Date: 20110425
  Transmission Date: 20120608
  Serious: Yes (Other)
  Sender: FDA-Public Use
  Company Number: PHHY2011US06019

PATIENT
  Age: 72 Year
  Sex: Female
  Weight: 68 kg

DRUGS (19)
  1. AM LACTIN (AMMNOIUM LACTATE) [Concomitant]
  2. CLARINEX [Concomitant]
  3. AUGMENTIN '125' [Concomitant]
  4. PRILOSEC [Concomitant]
  5. ACETAMINOPHEN [Concomitant]
  6. MULTI-VITAMINS [Concomitant]
  7. SERTRALINE HYDROCHLORIDE [Concomitant]
  8. FISH OIL (FISH OIL) [Concomitant]
  9. METFORMIN HCL [Concomitant]
  10. FLUTICASONE PROPIONATE [Concomitant]
  11. EVISTA [Concomitant]
  12. GLEEVEC [Suspect]
     Indication: RECTOSIGMOID CANCER
     Dosage: 400 MG, QD, ORAL
     Route: 048
     Dates: start: 20101123
  13. HYDROCHLOROTHIAZIDE [Concomitant]
  14. ZOLOFT [Concomitant]
  15. AMLODIPINE [Concomitant]
  16. CLOBETASOL (CLOBETASOL) [Concomitant]
  17. IRON SUPPLEMENTS (NO INGREDIENTS/SUBSTANCES) [Concomitant]
  18. CALTRATE WITH VIT D (CALCIUM CARBONATE, VITAMIN D NOS) [Concomitant]
  19. MULTIVITAMINS (ASCORBIC ACID, ERGOCALCIFEROL, FOLIC ACID, NICOTINAMIDE [Concomitant]

REACTIONS (9)
  - FATIGUE [None]
  - HAEMOPTYSIS [None]
  - WHEEZING [None]
  - EYE SWELLING [None]
  - RENAL INJURY [None]
  - SPLENIC LESION [None]
  - HEPATIC ENZYME INCREASED [None]
  - FAECES DISCOLOURED [None]
  - UPPER RESPIRATORY TRACT INFECTION [None]
